FAERS Safety Report 19462191 (Version 2)
Quarter: 2021Q3

REPORT INFORMATION
  Report Type: Spontaneous
  Country: US (occurrence: US)
  Receive Date: 20210625
  Receipt Date: 20210927
  Transmission Date: 20211014
  Serious: No
  Sender: FDA-Public Use
  Company Number: US-ASTELLAS-2021US017970

PATIENT
  Age: 69 Year
  Sex: Male

DRUGS (4)
  1. PADCEV [Suspect]
     Active Substance: ENFORTUMAB VEDOTIN-EJFV
     Indication: METASTATIC NEOPLASM
     Dosage: 1.25 MG/KG, CYCLIC (DAYS 1, 8 15 OF 28 DAYS CYCLE)
     Route: 042
     Dates: start: 20210504, end: 20210504
  2. PADCEV [Suspect]
     Active Substance: ENFORTUMAB VEDOTIN-EJFV
     Dosage: 1.25 MG/KG, CYCLIC (DAYS 1, 8 15 OF 28 DAYS CYCLE)
     Route: 042
  3. PADCEV [Suspect]
     Active Substance: ENFORTUMAB VEDOTIN-EJFV
     Indication: TRANSITIONAL CELL CARCINOMA
     Dosage: 1.25 MG/KG, CYCLIC (DAYS 1, 8 15 OF 28 DAYS CYCLE)
     Route: 042
     Dates: start: 20210309
  4. ZOLEDRONIC ACID [Concomitant]
     Active Substance: ZOLEDRONIC ACID
     Indication: PRODUCT USED FOR UNKNOWN INDICATION
     Dosage: UNK UNK, UNKNOWN FREQ.
     Route: 065

REACTIONS (7)
  - Skin exfoliation [Recovering/Resolving]
  - Inflammation [Not Recovered/Not Resolved]
  - Condition aggravated [Recovered/Resolved]
  - Injection site extravasation [Not Recovered/Not Resolved]
  - Paraesthesia [Recovered/Resolved]
  - Skin discolouration [Not Recovered/Not Resolved]
  - Erythema [Recovered/Resolved]

NARRATIVE: CASE EVENT DATE: 202105
